FAERS Safety Report 5966169-2 (Version None)
Quarter: 2008Q4

REPORT INFORMATION
  Report Type: 
  Country: None (occurrence: None)
  Receive Date: 20081125
  Receipt Date: 20081113
  Transmission Date: 20090506
  Serious: Yes (Other)
  Sender: FDA-Public Use
  Company Number: MX-ROCHE-597061

PATIENT
  Sex: Male

DRUGS (2)
  1. PEGASYS [Suspect]
     Indication: HEPATITIS C
     Dates: start: 20061101, end: 20071001
  2. RIBAVIRIN [Suspect]
     Indication: HEPATITIS C
     Dates: start: 20061101, end: 20071001

REACTIONS (4)
  - BRONCHIAL HYPERREACTIVITY [None]
  - MATERNAL DRUGS AFFECTING FOETUS [None]
  - PREMATURE LABOUR [None]
  - THYMUS ENLARGEMENT [None]
